FAERS Safety Report 12261321 (Version 1)
Quarter: 2016Q2

REPORT INFORMATION
  Report Type: Report from Study
  Country: US (occurrence: US)
  Receive Date: 20160412
  Receipt Date: 20160412
  Transmission Date: 20160815
  Serious: Yes (Hospitalization, Other)
  Sender: FDA-Public Use
  Company Number: ADR-2014-01902

PATIENT
  Age: 62 Year
  Sex: Female

DRUGS (4)
  1. SUFENTA [Suspect]
     Active Substance: SUFENTANIL CITRATE
     Dosage: 135.04MCG/DAY
     Route: 037
  2. BUPIVACAINE. [Suspect]
     Active Substance: BUPIVACAINE
     Dosage: 11.997MG/DAY
     Route: 037
  3. CLONIDINE. [Suspect]
     Active Substance: CLONIDINE
     Dosage: 750.5MCG/DAY
     Route: 037
  4. COMPOUNDED BACLOFEN [Suspect]
     Active Substance: BACLOFEN
     Dosage: 399.32MCG/DAY
     Route: 037

REACTIONS (5)
  - Wound dehiscence [Recovered/Resolved]
  - Implant site infection [Recovered/Resolved]
  - Medical device site erythema [Recovered/Resolved]
  - Medical device site discharge [Recovered/Resolved]
  - Staphylococcus test positive [Recovered/Resolved]

NARRATIVE: CASE EVENT DATE: 20140921
